FAERS Safety Report 7495191-2 (Version None)
Quarter: 2011Q2

REPORT INFORMATION
  Report Type: 
  Country: None (occurrence: None)
  Receive Date: 20110520
  Receipt Date: 20110512
  Transmission Date: 20111010
  Serious: Yes (Other)
  Sender: FDA-Public Use
  Company Number: US-RB-027538-11

PATIENT
  Sex: Male

DRUGS (3)
  1. SUBOXONE [Suspect]
     Indication: ALCOHOLISM
     Route: 065
  2. ETOH [Suspect]
     Indication: ALCOHOLISM
     Route: 048
  3. COCAINE [Suspect]
     Indication: PRODUCT USED FOR UNKNOWN INDICATION
     Route: 065

REACTIONS (3)
  - THERAPY NAIVE [None]
  - MALAISE [None]
  - SUBSTANCE ABUSE [None]
